FAERS Safety Report 14690198 (Version 1)
Quarter: 2018Q1

REPORT INFORMATION
  Report Type: Spontaneous
  Country: US (occurrence: US)
  Receive Date: 20180328
  Receipt Date: 20180328
  Transmission Date: 20180509
  Serious: Yes (Other)
  Sender: FDA-Public Use
  Company Number: US-009507513-1803USA009169

PATIENT
  Age: 33 Year
  Sex: Female
  Weight: 74.83 kg

DRUGS (1)
  1. NEXPLANON [Suspect]
     Active Substance: ETONOGESTREL
     Indication: CONTRACEPTION
     Dosage: 1 IMPLANT UP TO 3 YEARS, LEFT ARN
     Route: 059
     Dates: start: 201408

REACTIONS (4)
  - Incorrect drug administration duration [Unknown]
  - Pregnancy with implant contraceptive [Unknown]
  - Unintended pregnancy [Unknown]
  - Abdominal pain [Unknown]

NARRATIVE: CASE EVENT DATE: 201709
